FAERS Safety Report 8284177-6 (Version None)
Quarter: 2012Q2

REPORT INFORMATION
  Report Type: 
  Country: None (occurrence: None)
  Receive Date: 20120413
  Receipt Date: 20111219
  Transmission Date: 20120825
  Serious: No
  Sender: FDA-Public Use
  Company Number: US-ASTRAZENECA-2011SE76773

PATIENT
  Age: 31 Year
  Weight: 65.8 kg

DRUGS (2)
  1. BACTRIM [Concomitant]
  2. NEXIUM [Suspect]
     Indication: GASTROOESOPHAGEAL REFLUX DISEASE
     Route: 048
     Dates: start: 20111101, end: 20111214

REACTIONS (2)
  - ANXIETY [None]
  - PANIC ATTACK [None]
